FAERS Safety Report 18713639 (Version 2)
Quarter: 2021Q1

REPORT INFORMATION
  Report Type: Spontaneous
  Country: FR (occurrence: FR)
  Receive Date: 20210107
  Receipt Date: 20210210
  Transmission Date: 20210419
  Serious: Yes (Hospitalization)
  Sender: FDA-Public Use
  Company Number: FR-SA-2021SA000254

PATIENT
  Age: 92 Year
  Sex: Female
  Weight: 69 kg

DRUGS (3)
  1. LOVENOX [Suspect]
     Active Substance: ENOXAPARIN SODIUM
     Indication: ANTICOAGULANT THERAPY
     Dosage: UNSPECIFIED
     Route: 058
     Dates: start: 20201125, end: 20201204
  2. XENETIX [Suspect]
     Active Substance: IOBITRIDOL
     Indication: SPLENIC ARTERY EMBOLISATION
     Dosage: 80 ML
     Route: 042
     Dates: start: 20201121, end: 20201121
  3. OMNIPAQUE [Suspect]
     Active Substance: IOHEXOL
     Indication: COMPUTERISED TOMOGRAM
     Dosage: ONE ADMINISTRATION ON 20/11/2020, A SECOND ON 27/11/2020
     Route: 042
     Dates: start: 20201120, end: 20201127

REACTIONS (3)
  - Pruritus [Recovered/Resolved]
  - Rash [Recovered/Resolved]
  - Eosinophilia [Recovered/Resolved]

NARRATIVE: CASE EVENT DATE: 20201125
